FAERS Safety Report 12839234 (Version 1)
Quarter: 2016Q4

REPORT INFORMATION
  Report Type: Spontaneous
  Country: US (occurrence: US)
  Receive Date: 20161012
  Receipt Date: 20161012
  Transmission Date: 20170207
  Serious: Yes (Death, Hospitalization)
  Sender: FDA-Public Use
  Company Number: None

PATIENT
  Age: 67 Year
  Sex: Female
  Weight: 72.64 kg

DRUGS (1)
  1. OMEPRAZOLE (GENERIC FOR PRILOSEC) [Suspect]
     Active Substance: OMEPRAZOLE
     Indication: GASTROOESOPHAGEAL REFLUX DISEASE
     Dosage: ?          QUANTITY:I?I PILL?
     Dates: start: 20150626, end: 20160126

REACTIONS (2)
  - Secretion discharge [None]
  - Renal failure [None]

NARRATIVE: CASE EVENT DATE: 20151010
